FAERS Safety Report 8517751-X (Version None)
Quarter: 2012Q3

REPORT INFORMATION
  Report Type: 
  Country: None (occurrence: None)
  Receive Date: 20120718
  Receipt Date: 20120618
  Transmission Date: 20120928
  Serious: No
  Sender: FDA-Public Use
  Company Number: US-BAYER-2012-066906

PATIENT

DRUGS (2)
  1. NAPROXEN SODIUM [Suspect]
     Indication: PAIN
  2. CELEBREX [Concomitant]
     Indication: PAIN

REACTIONS (1)
  - PAIN [None]
